FAERS Safety Report 20661031 (Version 1)
Quarter: 2022Q1

REPORT INFORMATION
  Report Type: Spontaneous
  Country: HU (occurrence: HU)
  Receive Date: 20220331
  Receipt Date: 20220331
  Transmission Date: 20220423
  Serious: Yes (Other)
  Sender: FDA-Public Use
  Company Number: HU-002147023-NVSC2022HU064744

PATIENT

DRUGS (11)
  1. RUXOLITINIB [Suspect]
     Active Substance: RUXOLITINIB
     Indication: Myelofibrosis
     Dosage: 10 MG, BID
     Route: 065
     Dates: start: 2013, end: 2017
  2. RUXOLITINIB [Suspect]
     Active Substance: RUXOLITINIB
     Dosage: 10 MG, BID
     Route: 065
     Dates: start: 2018
  3. RUXOLITINIB [Suspect]
     Active Substance: RUXOLITINIB
     Dosage: 15 MG, BID
     Route: 065
     Dates: start: 201909
  4. RUXOLITINIB [Suspect]
     Active Substance: RUXOLITINIB
     Dosage: 5 MG, BID
     Route: 065
     Dates: start: 202203
  5. RUXOLITINIB [Suspect]
     Active Substance: RUXOLITINIB
     Dosage: 20 MG, BID
     Route: 065
  6. CYTARABINE [Suspect]
     Active Substance: CYTARABINE
     Indication: Myelofibrosis
     Dosage: UNK
     Route: 058
  7. HYDROXYUREA [Concomitant]
     Active Substance: HYDROXYUREA
     Indication: Myelofibrosis
     Dosage: UNK
     Route: 065
     Dates: start: 202104
  8. VIDAZA [Concomitant]
     Active Substance: AZACITIDINE
     Indication: Myelofibrosis
     Dosage: UNK
     Route: 065
     Dates: start: 202109
  9. MOMELOTINIB [Concomitant]
     Active Substance: MOMELOTINIB
     Indication: Product used for unknown indication
     Dosage: UNK
     Route: 065
     Dates: start: 20200825
  10. MOMELOTINIB [Concomitant]
     Active Substance: MOMELOTINIB
     Dosage: 200 MG, QD
     Route: 065
     Dates: start: 202012
  11. MOMELOTINIB [Concomitant]
     Active Substance: MOMELOTINIB
     Dosage: UNK (WAS NO EFFECTIVE)
     Route: 065
     Dates: start: 202103

REACTIONS (11)
  - Anaemia [Unknown]
  - COVID-19 [Unknown]
  - Ill-defined disorder [Recovering/Resolving]
  - Hyperhidrosis [Unknown]
  - Asthenia [Unknown]
  - Leukocytosis [Unknown]
  - Weight decreased [Unknown]
  - Disease progression [Unknown]
  - Platelet count abnormal [Unknown]
  - Splenomegaly [Unknown]
  - Thrombocytopenia [Unknown]

NARRATIVE: CASE EVENT DATE: 20190901
